FAERS Safety Report 6215517-7 (Version None)
Quarter: 2009Q2

REPORT INFORMATION
  Report Type: 
  Country: None (occurrence: None)
  Receive Date: 20090603
  Receipt Date: 20090519
  Transmission Date: 20091009
  Serious: Yes (Hospitalization)
  Sender: FDA-Public Use
  Company Number: 230282K09BRA

PATIENT
  Age: 25 Year
  Sex: Male

DRUGS (2)
  1. REBIF [Suspect]
     Indication: RELAPSING-REMITTING MULTIPLE SCLEROSIS
     Dosage: 44 MCG, 3 IN 1 WEEKS
     Dates: start: 20090301
  2. ACETAMINOPHEN [Concomitant]

REACTIONS (5)
  - HEADACHE [None]
  - MYALGIA [None]
  - NAUSEA [None]
  - PYREXIA [None]
  - VOMITING [None]
